FAERS Safety Report 4503035-3 (Version None)
Quarter: 2004Q4

REPORT INFORMATION
  Report Type: 
  Country: None (occurrence: None)
  Receive Date: 20041112
  Receipt Date: 20041102
  Transmission Date: 20050328
  Serious: Yes (Hospitalization)
  Sender: FDA-Public Use
  Company Number: 2004CG02219

PATIENT
  Age: 78 Year
  Sex: Male
  Weight: 67 kg

DRUGS (3)
  1. ATACAND [Suspect]
     Dosage: 8 MG QD PO
     Route: 048
  2. PREVISCAN [Concomitant]
  3. ADANCOR [Concomitant]

REACTIONS (5)
  - BLOOD CREATININE INCREASED [None]
  - BLOOD PRESSURE FLUCTUATION [None]
  - BLOOD UREA INCREASED [None]
  - BLOOD URIC ACID INCREASED [None]
  - HYPOTENSION [None]
